FAERS Safety Report 5556256-5 (Version None)
Quarter: 2007Q4

REPORT INFORMATION
  Report Type: 
  Country: None (occurrence: None)
  Receive Date: 20071203
  Receipt Date: 20071122
  Transmission Date: 20080405
  Serious: Yes (Other)
  Sender: FDA-Public Use
  Company Number: 2007336101

PATIENT
  Age: 22 Year
  Sex: Male

DRUGS (2)
  1. ACTIFED [Suspect]
     Indication: DRUG USE FOR UNKNOWN INDICATION
     Dosage: 1 DOSE THREE TIMES PER DAY (1 IN 3 D), ORAL
     Route: 048
     Dates: start: 20070822, end: 20070824
  2. EFFEXOR [Concomitant]

REACTIONS (3)
  - ACCOMMODATION DISORDER [None]
  - MALAISE [None]
  - MYDRIASIS [None]
